FAERS Safety Report 7326149-1 (Version None)
Quarter: 2011Q1

REPORT INFORMATION
  Report Type: 
  Country: None (occurrence: None)
  Receive Date: 20110302
  Receipt Date: 20110221
  Transmission Date: 20110831
  Serious: Yes (Other)
  Sender: FDA-Public Use
  Company Number: JP-ROCHE-762269

PATIENT
  Age: 75 Year
  Sex: Female

DRUGS (1)
  1. AVASTIN [Suspect]
     Dosage: NOTE: DOSAGE IS UNCERTAIN
     Route: 041

REACTIONS (2)
  - MUSCLE SPASMS [None]
  - LEUKOENCEPHALOPATHY [None]
